FAERS Safety Report 6678169-8 (Version None)
Quarter: 2010Q2

REPORT INFORMATION
  Report Type: 
  Country: None (occurrence: None)
  Receive Date: 20100409
  Receipt Date: 20100409
  Transmission Date: 20101027
  Serious: Yes (Other)
  Sender: FDA-Public Use
  Company Number: None

PATIENT
  Age: 33 Year
  Sex: Female
  Weight: 82.5547 kg

DRUGS (2)
  1. CYMBALTA [Suspect]
     Indication: BIPOLAR DISORDER
     Dosage: 20MG TWICE DAILY PO
     Route: 048
     Dates: start: 20070101, end: 20100330
  2. CYMBALTA [Suspect]
     Indication: DEPRESSION
     Dosage: 20MG TWICE DAILY PO
     Route: 048
     Dates: start: 20070101, end: 20100330

REACTIONS (16)
  - ACTIVITIES OF DAILY LIVING IMPAIRED [None]
  - BURNING SENSATION [None]
  - DIABETES MELLITUS [None]
  - DIARRHOEA [None]
  - HYPERHIDROSIS [None]
  - HYPOTHYROIDISM [None]
  - IMPAIRED DRIVING ABILITY [None]
  - MALAISE [None]
  - MUSCLE SPASMS [None]
  - NAUSEA [None]
  - NIGHTMARE [None]
  - PARAESTHESIA [None]
  - SLEEP DISORDER [None]
  - TACHYPHRENIA [None]
  - TREMOR [None]
  - VOMITING [None]
